FAERS Safety Report 16488877 (Version 1)
Quarter: 2019Q2

REPORT INFORMATION
  Report Type: Spontaneous
  Country: US (occurrence: US)
  Receive Date: 20190627
  Receipt Date: 20190627
  Transmission Date: 20190711
  Serious: No
  Sender: FDA-Public Use
  Company Number: US-JIANGSU HENGRUI MEDICINE CO., LTD.-2069747

PATIENT
  Age: 66 Year
  Sex: Male

DRUGS (7)
  1. DOXORUBICIN [Suspect]
     Active Substance: DOXORUBICIN
  2. PREDNISONE. [Suspect]
     Active Substance: PREDNISONE
  3. CYCLOPHOSPHAMIDE FOR INJECTION USP, 500 MG, 1 G AND 2 G PER SINGLE-DOS [Suspect]
     Active Substance: CYCLOPHOSPHAMIDE
     Indication: DIFFUSE LARGE B-CELL LYMPHOMA STAGE IV
  4. VINCRISTINE [Suspect]
     Active Substance: VINCRISTINE
  5. ADRIAMYCIN [Suspect]
     Active Substance: DOXORUBICIN HYDROCHLORIDE
  6. DEXAMETHASONE. [Suspect]
     Active Substance: DEXAMETHASONE
  7. RITUXIMAB. [Suspect]
     Active Substance: RITUXIMAB

REACTIONS (1)
  - Neoplasm recurrence [Unknown]
